FAERS Safety Report 4382878-3 (Version None)
Quarter: 2004Q2

REPORT INFORMATION
  Report Type: 
  Country: None (occurrence: None)
  Receive Date: 20040617
  Receipt Date: 20040609
  Transmission Date: 20050107
  Serious: Yes (Death, Other)
  Sender: FDA-Public Use
  Company Number: 163-20785-04030281

PATIENT
  Age: 79 Year
  Sex: Female

DRUGS (5)
  1. THALOMID [Suspect]
     Indication: MYELODYSPLASTIC SYNDROME
     Dosage: 50 MG, QHS, ORAL
     Route: 048
     Dates: start: 20040217, end: 20040227
  2. AMICAR [Concomitant]
  3. PLATELETS [Concomitant]
  4. BLOOD TRANSFUSION [Concomitant]
  5. ERYTHROPOIETIN (ERYTHROPOIETIN) [Concomitant]

REACTIONS (10)
  - CEREBRAL HAEMORRHAGE TRAUMATIC [None]
  - DISEASE PROGRESSION [None]
  - DIZZINESS [None]
  - FALL [None]
  - FEELING ABNORMAL [None]
  - FRACTURED COCCYX [None]
  - HEAD INJURY [None]
  - MUSCLE DISORDER [None]
  - MYELODYSPLASTIC SYNDROME [None]
  - SUBDURAL HAEMATOMA [None]
